APPROVED DRUG PRODUCT: ALPHACAINE HYDROCHLORIDE W/ EPINEPHRINE
Active Ingredient: EPINEPHRINE; LIDOCAINE HYDROCHLORIDE
Strength: 0.02MG/ML;2%
Dosage Form/Route: INJECTABLE;INJECTION
Application: A084732 | Product #001
Applicant: CARLISLE LABORATORIES INC
Approved: Approved Prior to Jan 1, 1982 | RLD: No | RS: No | Type: DISCN